FAERS Safety Report 24130758 (Version 1)
Quarter: 2024Q3

REPORT INFORMATION
  Report Type: Report from Study
  Country: GB (occurrence: None)
  Receive Date: 20240724
  Receipt Date: 20240724
  Transmission Date: 20241016
  Serious: Yes (Hospitalization, Other)
  Sender: ASTRAZENECA
  Company Number: 2020SE49216

PATIENT
  Sex: Female

DRUGS (1)
  1. FASENRA [Suspect]
     Active Substance: BENRALIZUMAB
     Dosage: 30.0MG UNKNOWN
     Route: 058

REACTIONS (7)
  - Respiration abnormal [Recovering/Resolving]
  - Suicidal ideation [Unknown]
  - Headache [Unknown]
  - Feeling abnormal [Unknown]
  - Depressed mood [Unknown]
  - Anger [Unknown]
  - Deja vu [Unknown]
